FAERS Safety Report 4339212-4 (Version None)
Quarter: 2004Q2

REPORT INFORMATION
  Report Type: 
  Country: None (occurrence: None)
  Receive Date: 20040415
  Receipt Date: 20040303
  Transmission Date: 20050107
  Serious: Yes (Other)
  Sender: FDA-Public Use
  Company Number: PHNU2004DE01101

PATIENT
  Age: 59 Year
  Sex: Female

DRUGS (2)
  1. ESTRADIOL [Suspect]
     Indication: HORMONE REPLACEMENT THERAPY
     Dosage: 37.5
     Dates: start: 20031001
  2. ESTRADIOL [Suspect]
     Dosage: 75.0

REACTIONS (2)
  - GAMMA-GLUTAMYLTRANSFERASE INCREASED [None]
  - WEIGHT INCREASED [None]
